FAERS Safety Report 7159751-0 (Version None)
Quarter: 2010Q4

REPORT INFORMATION
  Report Type: 
  Country: None (occurrence: None)
  Receive Date: 20101214
  Receipt Date: 20101005
  Transmission Date: 20110411
  Serious: No
  Sender: FDA-Public Use
  Company Number: US-ASTRAZENECA-2010SE47209

PATIENT
  Age: 87 Year
  Sex: Male
  Weight: 83.9 kg

DRUGS (4)
  1. CRESTOR [Suspect]
     Route: 048
  2. CRESTOR [Suspect]
     Route: 048
     Dates: start: 20100514, end: 20100524
  3. OMEPRAZOLE [Suspect]
     Route: 048
  4. OTHER [Suspect]
     Route: 048

REACTIONS (10)
  - ANXIETY [None]
  - CHILLS [None]
  - DIABETES MELLITUS [None]
  - DIZZINESS [None]
  - DRUG HYPERSENSITIVITY [None]
  - FEELING ABNORMAL [None]
  - GASTROOESOPHAGEAL REFLUX DISEASE [None]
  - HERNIA [None]
  - NAUSEA [None]
  - PRESYNCOPE [None]
